FAERS Safety Report 6498923-5 (Version None)
Quarter: 2009Q4

REPORT INFORMATION
  Report Type: 
  Country: None (occurrence: None)
  Receive Date: 20091127
  Receipt Date: 20081104
  Transmission Date: 20100525
  Serious: No
  Sender: FDA-Public Use
  Company Number: 280949

PATIENT
  Age: 60 Year
  Sex: Female

DRUGS (2)
  1. LEVEMIR [Suspect]
     Indication: DIABETES MELLITUS
     Dosage: SUBCUTANEOUS
     Route: 058
     Dates: start: 20080801
  2. NOVOLOG [Suspect]
     Indication: DIABETES MELLITUS
     Dosage: SUBCUTANEOUS
     Route: 058
     Dates: start: 20080801

REACTIONS (2)
  - EYELID OEDEMA [None]
  - MIGRAINE [None]
